FAERS Safety Report 13078248 (Version 2)
Quarter: 2017Q1

REPORT INFORMATION
  Report Type: Spontaneous
  Country: GB (occurrence: NZ)
  Receive Date: 20170102
  Receipt Date: 20170113
  Transmission Date: 20170428
  Serious: Yes (Hospitalization, Other)
  Sender: FDA-Public Use
  Company Number: NZ-BIOVITRUM-2016NZ0893

PATIENT
  Age: 34 Year
  Sex: Male
  Weight: 100 kg

DRUGS (2)
  1. PREDNISONE. [Concomitant]
     Active Substance: PREDNISONE
     Indication: INFLAMMATION
  2. KINERET [Suspect]
     Active Substance: ANAKINRA
     Indication: PLEURAL EFFUSION
     Route: 058
     Dates: start: 2013, end: 2016

REACTIONS (2)
  - Mesothelioma [Recovered/Resolved with Sequelae]
  - Off label use [Unknown]
